FAERS Safety Report 4608584-5 (Version None)
Quarter: 2005Q1

REPORT INFORMATION
  Report Type: 
  Country: None (occurrence: None)
  Receive Date: 20050311
  Receipt Date: 20050303
  Transmission Date: 20050727
  Serious: Yes (Death, Hospitalization)
  Sender: FDA-Public Use
  Company Number: 2005UW03057

PATIENT
  Age: 75 Year
  Sex: Female
  Weight: 45 kg

DRUGS (7)
  1. TAXOTERE [Suspect]
     Indication: NON-SMALL CELL LUNG CANCER
     Dosage: 75 MG/M2 Q3WK IV
     Route: 042
     Dates: start: 20050211, end: 20050211
  2. DIDROCAL [Concomitant]
  3. HYDROMORPHONE [Concomitant]
  4. CRESTOR [Concomitant]
  5. TYLENOL NO. 2 [Concomitant]
  6. DEXAMETHASONE [Concomitant]
  7. PROCHLORPERAZINE [Concomitant]

REACTIONS (16)
  - BLOOD BILIRUBIN INCREASED [None]
  - BLOOD CHLORIDE DECREASED [None]
  - BLOOD PRESSURE SYSTOLIC DECREASED [None]
  - BLOOD SODIUM DECREASED [None]
  - BLOOD UREA INCREASED [None]
  - HAEMOGLOBIN DECREASED [None]
  - HYPOKALAEMIA [None]
  - HYPOTENSION [None]
  - LUNG DISORDER [None]
  - LUNG HYPERINFLATION [None]
  - LUNG INFILTRATION [None]
  - LYMPHADENOPATHY [None]
  - MASS [None]
  - NEUTROPENIC SEPSIS [None]
  - PLATELET COUNT DECREASED [None]
  - PNEUMONIA [None]
